FAERS Safety Report 8809172 (Version 1)
Quarter: 2012Q4

REPORT INFORMATION
  Report Type: Spontaneous
  Country: US (occurrence: None)
  Receive Date: 20120921
  Receipt Date: 20120921
  Transmission Date: 20130627
  Serious: Yes (Hospitalization)
  Sender: FDA-Public Use
  Company Number: None

PATIENT
  Age: 76 Year
  Sex: Female
  Weight: 72.5 kg

DRUGS (1)
  1. ACYCLOVIR SODIUM [Suspect]
     Indication: SHINGLES
     Route: 041
     Dates: start: 20120608, end: 20120610

REACTIONS (1)
  - Renal failure acute [None]
